FAERS Safety Report 4427757-8 (Version None)
Quarter: 2004Q3

REPORT INFORMATION
  Report Type: 
  Country: None (occurrence: None)
  Receive Date: 20040817
  Receipt Date: 20040806
  Transmission Date: 20050211
  Serious: Yes (Other)
  Sender: FDA-Public Use
  Company Number: JP-GLAXOSMITHKLINE-B0342357A

PATIENT
  Age: 82 Year
  Sex: Male

DRUGS (6)
  1. VALTREX [Suspect]
     Indication: HERPES ZOSTER
     Dosage: 1000MG PER DAY
     Route: 048
     Dates: start: 20040804, end: 20040805
  2. HARNAL [Concomitant]
     Route: 048
  3. KETAS [Concomitant]
     Route: 065
  4. EXCEGRAN [Concomitant]
     Route: 048
  5. CLEANAL [Concomitant]
     Route: 048
  6. ENSURE [Concomitant]
     Route: 048

REACTIONS (2)
  - DELIRIUM [None]
  - DELUSION [None]
